FAERS Safety Report 10537124 (Version 1)
Quarter: 2014Q4

REPORT INFORMATION
  Report Type: Spontaneous
  Country: US (occurrence: US)
  Receive Date: 20141022
  Receipt Date: 20141022
  Transmission Date: 20150529
  Serious: Yes (Other)
  Sender: FDA-Public Use
  Company Number: US-GILEAD-2014-0118946

PATIENT
  Sex: Male

DRUGS (1)
  1. ZYDELIG [Suspect]
     Active Substance: IDELALISIB
     Indication: CHRONIC LYMPHOCYTIC LEUKAEMIA
     Dosage: UNK
     Route: 065
     Dates: start: 201409

REACTIONS (11)
  - Fungal skin infection [Unknown]
  - Mental impairment [Unknown]
  - Chromaturia [Unknown]
  - Decreased appetite [Unknown]
  - Constipation [Unknown]
  - Asthenia [Unknown]
  - Ear pain [Unknown]
  - Lymphadenitis [Unknown]
  - Infection [Unknown]
  - Dyspnoea [Unknown]
  - Pyrexia [Unknown]
